FAERS Safety Report 7824075-2 (Version None)
Quarter: 2011Q4

REPORT INFORMATION
  Report Type: 
  Country: None (occurrence: None)
  Receive Date: 20111019
  Receipt Date: 20111013
  Transmission Date: 20120403
  Serious: Yes (Hospitalization)
  Sender: FDA-Public Use
  Company Number: PHHY2011US18683

PATIENT
  Sex: Male
  Weight: 20 kg

DRUGS (3)
  1. EXJADE [Suspect]
     Indication: IRON OVERLOAD
     Dosage: 500 MG, QD
     Route: 048
     Dates: start: 20100201
  2. PENICILLIN [Concomitant]
     Indication: SPLENECTOMY
     Dosage: 250 MG, Q12H
     Route: 048
  3. ASPIRIN [Concomitant]
     Indication: THROMBOCYTOSIS
     Dosage: 81 MG, QD
     Dates: start: 20100901

REACTIONS (8)
  - HEADACHE [None]
  - ASTHENIA [None]
  - NASOPHARYNGITIS [None]
  - DIARRHOEA [None]
  - SICKLE CELL ANAEMIA [None]
  - WHITE BLOOD CELL COUNT INCREASED [None]
  - MALAISE [None]
  - PYREXIA [None]
